FAERS Safety Report 6910291-0 (Version None)
Quarter: 2010Q3

REPORT INFORMATION
  Report Type: 
  Country: None (occurrence: None)
  Receive Date: 20100806
  Receipt Date: 20100723
  Transmission Date: 20110219
  Serious: Yes (Hospitalization)
  Sender: FDA-Public Use
  Company Number: DE-RANBAXY-2010RR-33152

PATIENT
  Age: 61 Year
  Sex: Female
  Weight: 68.5 kg

DRUGS (8)
  1. PARACETAMOL [Suspect]
     Indication: PAIN IN EXTREMITY
     Dosage: 1000 MG, QD
     Route: 048
     Dates: start: 20091213, end: 20100117
  2. EZETIMIBE/SIMVASTATIN [Suspect]
     Indication: HYPERLIPIDAEMIA
     Dosage: 1 DF, QD
     Route: 048
     Dates: start: 20080101, end: 20100117
  3. FALITHROM [Suspect]
     Indication: ATRIAL FIBRILLATION
     Dosage: 3 MG, QD
     Route: 048
     Dates: start: 20080101, end: 20100117
  4. CONCOR [Concomitant]
     Indication: ATRIAL FIBRILLATION
     Dosage: 7.5 MG, BID
     Route: 048
     Dates: start: 20080101
  5. DIGITOXIN [Concomitant]
     Indication: ATRIAL FIBRILLATION
     Dosage: 0.07 MG, QD
     Route: 048
     Dates: start: 20080101
  6. PANTOZOL [Concomitant]
     Indication: PROPHYLAXIS AGAINST GASTROINTESTINAL ULCER
     Dosage: 40 MG, BID
     Route: 048
     Dates: start: 20080101
  7. RAMIPRIL [Concomitant]
     Indication: HYPERTENSION
     Dosage: 5 MG, QD
     Route: 048
     Dates: start: 20080101
  8. SPIRIVA [Concomitant]
     Indication: CHRONIC OBSTRUCTIVE PULMONARY DISEASE
     Dosage: 18 UG, QD
     Route: 055
     Dates: start: 20080101

REACTIONS (2)
  - DRUG INTERACTION [None]
  - HYPERTRANSAMINASAEMIA [None]
